FAERS Safety Report 22811934 (Version 3)
Quarter: 2024Q1

REPORT INFORMATION
  Report Type: Spontaneous
  Country: US (occurrence: US)
  Receive Date: 20230811
  Receipt Date: 20240328
  Transmission Date: 20240410
  Serious: No
  Sender: FDA-Public Use
  Company Number: US-BIOGEN-2023BI01220079

PATIENT
  Sex: Female

DRUGS (2)
  1. SPINRAZA [Suspect]
     Active Substance: NUSINERSEN
     Indication: Spinal muscular atrophy
     Route: 050
     Dates: start: 20180416
  2. SPINRAZA [Suspect]
     Active Substance: NUSINERSEN
     Route: 050

REACTIONS (8)
  - Bone disorder [Unknown]
  - Muscle spasms [Unknown]
  - Paraesthesia [Unknown]
  - Restlessness [Unknown]
  - Myalgia [Unknown]
  - Neuralgia [Not Recovered/Not Resolved]
  - Muscle tightness [Unknown]
  - Injection site pain [Unknown]
